FAERS Safety Report 8780440 (Version 1)
Quarter: 2012Q4

REPORT INFORMATION
  Report Type: Spontaneous
  Country: US (occurrence: None)
  Receive Date: 20120905
  Receipt Date: 20120905
  Transmission Date: 20130627
  Serious: Yes (Hospitalization, Other)
  Sender: FDA-Public Use
  Company Number: None

PATIENT
  Age: 25 Year
  Sex: Female
  Weight: 136.08 kg

DRUGS (1)
  1. LO LOESTRIN FE [Suspect]
     Dosage: 1 pill per day
     Dates: start: 20110622, end: 20120505

REACTIONS (1)
  - Thrombosis [None]
